FAERS Safety Report 22377272 (Version 2)
Quarter: 2023Q2

REPORT INFORMATION
  Report Type: Other
  Country: PT (occurrence: PT)
  Receive Date: 20230529
  Receipt Date: 20230606
  Transmission Date: 20230722
  Serious: Yes (Death, Other)
  Sender: FDA-Public Use
  Company Number: PT-ROCHE-3347037

PATIENT

DRUGS (32)
  1. DEXAMETHASONE SODIUM PHOSPHATE [Suspect]
     Active Substance: DEXAMETHASONE SODIUM PHOSPHATE
     Indication: Non-Hodgkin^s lymphoma
     Dosage: UNK
     Route: 065
     Dates: start: 20220728, end: 20220729
  2. DEXAMETHASONE SODIUM PHOSPHATE [Suspect]
     Active Substance: DEXAMETHASONE SODIUM PHOSPHATE
     Indication: B-cell lymphoma
  3. POLATUZUMAB VEDOTIN [Suspect]
     Active Substance: POLATUZUMAB VEDOTIN
     Indication: Non-Hodgkin^s lymphoma
     Dosage: UNK
     Route: 065
     Dates: start: 20221025, end: 20221027
  4. POLATUZUMAB VEDOTIN [Suspect]
     Active Substance: POLATUZUMAB VEDOTIN
     Indication: B-cell lymphoma
  5. BENDAMUSTINE [Suspect]
     Active Substance: BENDAMUSTINE
     Indication: Non-Hodgkin^s lymphoma
     Dosage: UNK
     Route: 065
     Dates: start: 20221025, end: 20221027
  6. BENDAMUSTINE [Suspect]
     Active Substance: BENDAMUSTINE
     Indication: B-cell lymphoma
  7. GEMCITABINE [Suspect]
     Active Substance: GEMCITABINE
     Indication: Non-Hodgkin^s lymphoma
     Dosage: UNK
     Route: 065
  8. GEMCITABINE [Suspect]
     Active Substance: GEMCITABINE
     Indication: B-cell lymphoma
  9. OXALIPLATIN [Suspect]
     Active Substance: OXALIPLATIN
     Indication: Non-Hodgkin^s lymphoma
     Dosage: UNK
     Route: 065
  10. OXALIPLATIN [Suspect]
     Active Substance: OXALIPLATIN
     Indication: B-cell lymphoma
  11. IFOSFAMIDE [Suspect]
     Active Substance: IFOSFAMIDE
     Indication: Non-Hodgkin^s lymphoma
     Dosage: UNK
     Route: 065
     Dates: start: 20220419, end: 20220528
  12. IFOSFAMIDE [Suspect]
     Active Substance: IFOSFAMIDE
     Indication: B-cell lymphoma
  13. VINCRISTINE [Suspect]
     Active Substance: VINCRISTINE
     Indication: Non-Hodgkin^s lymphoma
     Dosage: UNK
     Route: 065
     Dates: start: 20211111, end: 20220301
  14. VINCRISTINE [Suspect]
     Active Substance: VINCRISTINE
     Indication: B-cell lymphoma
  15. CYCLOPHOSPHAMIDE [Suspect]
     Active Substance: CYCLOPHOSPHAMIDE
     Indication: Non-Hodgkin^s lymphoma
     Dosage: UNK
     Route: 065
     Dates: start: 20211111, end: 20220301
  16. CYCLOPHOSPHAMIDE [Suspect]
     Active Substance: CYCLOPHOSPHAMIDE
     Indication: B-cell lymphoma
  17. RITUXIMAB [Suspect]
     Active Substance: RITUXIMAB
     Indication: Non-Hodgkin^s lymphoma
     Dosage: UNK
     Route: 065
     Dates: start: 20220728, end: 20220729
  18. RITUXIMAB [Suspect]
     Active Substance: RITUXIMAB
     Indication: B-cell lymphoma
     Dosage: UNK
     Route: 065
     Dates: start: 20221025, end: 20221027
  19. RITUXIMAB [Suspect]
     Active Substance: RITUXIMAB
     Dosage: UNK
     Route: 065
     Dates: start: 20220419, end: 20220528
  20. RITUXIMAB [Suspect]
     Active Substance: RITUXIMAB
     Dosage: UNK
     Route: 065
     Dates: start: 20211111, end: 20220301
  21. CYTARABINE [Suspect]
     Active Substance: CYTARABINE
     Indication: Non-Hodgkin^s lymphoma
     Dosage: UNK
     Route: 065
     Dates: start: 20220728, end: 20220729
  22. CYTARABINE [Suspect]
     Active Substance: CYTARABINE
     Indication: B-cell lymphoma
  23. CISPLATIN [Suspect]
     Active Substance: CISPLATIN
     Indication: Non-Hodgkin^s lymphoma
     Dosage: UNK
     Route: 065
     Dates: start: 20220728, end: 20220729
  24. CISPLATIN [Suspect]
     Active Substance: CISPLATIN
     Indication: B-cell lymphoma
  25. PREDNISONE [Suspect]
     Active Substance: PREDNISONE
     Indication: Non-Hodgkin^s lymphoma
     Dosage: UNK
     Route: 065
     Dates: start: 20211111, end: 20220301
  26. PREDNISONE [Suspect]
     Active Substance: PREDNISONE
     Indication: B-cell lymphoma
  27. ETOPOSIDE [Suspect]
     Active Substance: ETOPOSIDE
     Indication: Non-Hodgkin^s lymphoma
     Dosage: UNK
     Route: 065
     Dates: start: 20220419, end: 20220528
  28. ETOPOSIDE [Suspect]
     Active Substance: ETOPOSIDE
     Indication: B-cell lymphoma
  29. CARBOPLATIN [Suspect]
     Active Substance: CARBOPLATIN
     Indication: Non-Hodgkin^s lymphoma
     Dosage: UNK
     Route: 065
     Dates: start: 20220419, end: 20220528
  30. CARBOPLATIN [Suspect]
     Active Substance: CARBOPLATIN
     Indication: B-cell lymphoma
  31. DOXORUBICIN [Suspect]
     Active Substance: DOXORUBICIN
     Indication: Non-Hodgkin^s lymphoma
     Dosage: UNK
     Route: 065
     Dates: start: 20211111, end: 20220301
  32. DOXORUBICIN [Suspect]
     Active Substance: DOXORUBICIN
     Indication: B-cell lymphoma

REACTIONS (5)
  - Drug ineffective [Fatal]
  - Bacteraemia [Fatal]
  - Liver disorder [Fatal]
  - Liver abscess [Unknown]
  - Disease progression [Unknown]
